FAERS Safety Report 7776824-X (Version None)
Quarter: 2011Q3

REPORT INFORMATION
  Report Type: 
  Country: None (occurrence: None)
  Receive Date: 20110926
  Receipt Date: 20110921
  Transmission Date: 20111222
  Serious: Yes (Death)
  Sender: FDA-Public Use
  Company Number: GB-B.I. PHARMACEUTICALS,INC./RIDGEFIELD-2008-UK-01679UK

PATIENT
  Sex: Male

DRUGS (7)
  1. COMBIVENT [Concomitant]
     Indication: RESPIRATORY FAILURE
     Dosage: NEBULISER
     Route: 055
  2. SPIRIVA [Suspect]
     Indication: CHRONIC OBSTRUCTIVE PULMONARY DISEASE
  3. FLUOXETINE [Concomitant]
     Dosage: 20 MG
  4. THEOPHYLLINE [Concomitant]
     Indication: RESPIRATORY FAILURE
     Dosage: MR
  5. SPIRIVA [Suspect]
     Indication: RESPIRATORY FAILURE
     Dosage: 18 MCG
     Route: 055
     Dates: start: 20021101
  6. ALBUTEROL [Concomitant]
     Dosage: INHALER
  7. BECLOMETHASONE DIPROPIONATE [Concomitant]
     Indication: RESPIRATORY FAILURE
     Dosage: 250 INHALER
     Route: 055

REACTIONS (1)
  - RESPIRATORY FAILURE [None]
